FAERS Safety Report 21854433 (Version 2)
Quarter: 2023Q1

REPORT INFORMATION
  Report Type: Other
  Country: None (occurrence: US)
  Receive Date: 20230112
  Receipt Date: 20230206
  Transmission Date: 20230417
  Serious: Yes (Other)
  Sender: FDA-Public Use
  Company Number: US-Mission Pharmacal Company-2136650

PATIENT
  Age: 87 Year
  Sex: Female

DRUGS (4)
  1. THIOLA [Suspect]
     Active Substance: TIOPRONIN
     Indication: Ureterolithiasis
     Route: 048
     Dates: start: 20141223
  2. THIOLA [Suspect]
     Active Substance: TIOPRONIN
     Indication: Cystinuria
  3. PRAVASTATIN SODIUM [Concomitant]
     Active Substance: PRAVASTATIN SODIUM
  4. ASPIRIN [Concomitant]
     Active Substance: ASPIRIN

REACTIONS (2)
  - Cerebrovascular accident [Unknown]
  - Monoplegia [Unknown]

NARRATIVE: CASE EVENT DATE: 20230101
